FAERS Safety Report 6040606-X (Version None)
Quarter: 2009Q1

REPORT INFORMATION
  Report Type: 
  Country: None (occurrence: None)
  Receive Date: 20090116
  Receipt Date: 20080415
  Transmission Date: 20090719
  Serious: No
  Sender: FDA-Public Use
  Company Number: US-BRISTOL-MYERS SQUIBB COMPANY-14152490

PATIENT
  Age: 59 Year
  Sex: Female
  Weight: 58 kg

DRUGS (12)
  1. ABILIFY [Suspect]
     Indication: DEPRESSION
     Dosage: AT BEDTIME
     Dates: start: 20080311
  2. WELLBUTRIN XL [Concomitant]
  3. PROZAC [Concomitant]
  4. BONIVA [Concomitant]
  5. FERROUS SULFATE TAB [Concomitant]
  6. SOMA [Concomitant]
  7. LISINOPRIL AND HYDROCHLOROTHIAZIDE [Concomitant]
     Dosage: 1 DOSAGE FORM = 20/25 MG
  8. PREDNISONE TAB [Concomitant]
  9. CALCIUM + VITAMIN D [Concomitant]
  10. VITAMIN + IRON [Concomitant]
  11. VALIUM [Concomitant]
  12. FENTANYL TRANSDERMAL SYSTEM [Concomitant]

REACTIONS (4)
  - DYSARTHRIA [None]
  - MUSCULOSKELETAL PAIN [None]
  - NEOPLASM [None]
  - PAIN [None]
